FAERS Safety Report 5402916-6 (Version None)
Quarter: 2007Q3

REPORT INFORMATION
  Report Type: 
  Country: None (occurrence: None)
  Receive Date: 20070801
  Receipt Date: 20070716
  Transmission Date: 20080115
  Serious: No
  Sender: FDA-Public Use
  Company Number: US-JNJFOC-20070507194

PATIENT
  Sex: Female
  Weight: 68.04 kg

DRUGS (5)
  1. INVEGA [Suspect]
     Indication: DEPRESSION
     Route: 048
  2. ATARAX [Concomitant]
     Indication: DEPRESSION
     Route: 048
  3. ZOLOFT [Concomitant]
     Indication: DEPRESSION
     Route: 048
  4. METHADONE HCL [Concomitant]
     Indication: DRUG WITHDRAWAL SYNDROME
     Route: 048
  5. ORAL CONTRACEPTIVE [Concomitant]
     Indication: CONTRACEPTION
     Route: 048

REACTIONS (1)
  - DRUG SCREEN POSITIVE [None]
